FAERS Safety Report 13576195 (Version 2)
Quarter: 2017Q2

REPORT INFORMATION
  Report Type: Report from Study
  Country: US (occurrence: US)
  Receive Date: 20170524
  Receipt Date: 20170605
  Transmission Date: 20170830
  Serious: Yes (Hospitalization)
  Sender: FDA-Public Use
  Company Number: US-ACTELION-A-US2017-154213

PATIENT
  Age: 61 Year
  Sex: Male
  Weight: 72.56 kg

DRUGS (3)
  1. VELETRI [Suspect]
     Active Substance: EPOPROSTENOL
     Indication: PULMONARY ARTERIAL HYPERTENSION
     Dosage: UNK
     Route: 042
     Dates: start: 20170425
  2. REMODULIN [Suspect]
     Active Substance: TREPROSTINIL
     Indication: PRODUCT USED FOR UNKNOWN INDICATION
     Route: 065
  3. OXYGEN. [Concomitant]
     Active Substance: OXYGEN

REACTIONS (9)
  - Pulmonary oedema [Unknown]
  - Rash [Unknown]
  - Abdominal pain [Unknown]
  - Lymphadenopathy [Unknown]
  - Lung transplant [Unknown]
  - Hepatic pain [Unknown]
  - Pulmonary arterial hypertension [Unknown]
  - Disease progression [Unknown]
  - Dyspnoea [Unknown]
